FAERS Safety Report 6528127-9 (Version None)
Quarter: 2010Q1

REPORT INFORMATION
  Report Type: 
  Country: None (occurrence: None)
  Receive Date: 20100106
  Receipt Date: 20091229
  Transmission Date: 20100710
  Serious: Yes (Hospitalization)
  Sender: FDA-Public Use
  Company Number: US-BAYER-200943884NA

PATIENT
  Age: 30 Year
  Sex: Female
  Weight: 59 kg

DRUGS (2)
  1. MIRENA [Suspect]
     Indication: MENSTRUATION IRREGULAR
     Dosage: CONTINUOUS
     Route: 015
     Dates: start: 20091001, end: 20091215
  2. VITAMINS [Concomitant]

REACTIONS (1)
  - CERVICAL DYSPLASIA [None]
